FAERS Safety Report 8191237-7 (Version None)
Quarter: 2012Q1

REPORT INFORMATION
  Report Type: 
  Country: None (occurrence: None)
  Receive Date: 20120307
  Receipt Date: 20120228
  Transmission Date: 20120608
  Serious: Yes (Other)
  Sender: FDA-Public Use
  Company Number: US-US-EMD SERONO, INC.-7115861

PATIENT
  Sex: Male

DRUGS (3)
  1. METFORMIN [Concomitant]
     Indication: DIABETES MELLITUS
  2. EGRIFTA [Suspect]
     Indication: LIPODYSTROPHY ACQUIRED
     Route: 058
     Dates: start: 20111008
  3. VICTOZA [Concomitant]
     Indication: DIABETES MELLITUS

REACTIONS (5)
  - OEDEMA PERIPHERAL [None]
  - POLLAKIURIA [None]
  - FATIGUE [None]
  - ARTERIAL DISORDER [None]
  - WEIGHT DECREASED [None]
